FAERS Safety Report 5518937-9 (Version None)
Quarter: 2007Q4

REPORT INFORMATION
  Report Type: 
  Country: None (occurrence: None)
  Receive Date: 20071114
  Receipt Date: 20071114
  Transmission Date: 20080405
  Serious: Yes (Hospitalization)
  Sender: FDA-Public Use
  Company Number: None

PATIENT
  Age: 31 Month
  Sex: Female
  Weight: 73.3 kg

DRUGS (9)
  1. BEVACIZUMAB GENENTECH, INC. [Suspect]
     Indication: OVARIAN CANCER RECURRENT
     Dosage: 10 MG/KG Q OTHER WK IV DRIP
     Route: 041
     Dates: start: 20071009, end: 20071024
  2. TOPOTECAN GSK [Suspect]
     Indication: OVARIAN CANCER RECURRENT
     Dosage: 4 MG/M2 Q WK X 3; 4TH OFF IV DRIP
     Route: 041
     Dates: start: 20071009, end: 20071024
  3. HYDROMORPHONE HCL [Concomitant]
  4. HEPARIN [Concomitant]
  5. NICOTINE [Concomitant]
  6. METHADONE [Concomitant]
  7. LORAZEPAM [Concomitant]
  8. PROMETHAZINE [Concomitant]
  9. CHLORASEPTIC SPRAY [Concomitant]

REACTIONS (1)
  - SMALL INTESTINAL OBSTRUCTION [None]
